FAERS Safety Report 17147129 (Version 8)
Quarter: 2020Q2

REPORT INFORMATION
  Report Type: Report from Study
  Country: FR (occurrence: FR)
  Receive Date: 20191212
  Receipt Date: 20200520
  Transmission Date: 20200713
  Serious: Yes (Death, Hospitalization, Other)
  Sender: FDA-Public Use
  Company Number: FR-ROCHE-2490639

PATIENT
  Age: 46 Year
  Sex: Male
  Weight: 80.6 kg

DRUGS (10)
  1. MORPHINE [Concomitant]
     Active Substance: MORPHINE
  2. ACUPAN [Concomitant]
     Active Substance: NEFOPAM HYDROCHLORIDE
  3. CABOZANTINIB [Suspect]
     Active Substance: CABOZANTINIB
     Indication: HEPATOCELLULAR CARCINOMA
     Route: 048
     Dates: start: 20191107
  4. ENSTILAR [Concomitant]
     Active Substance: BETAMETHASONE DIPROPIONATE\CALCIPOTRIENE HYDRATE
  5. TARDYFERON [Concomitant]
     Active Substance: FERROUS SULFATE
  6. PANTOPRAZOLE [Concomitant]
     Active Substance: PANTOPRAZOLE
  7. PROPRANOLOL [Concomitant]
     Active Substance: PROPRANOLOL HYDROCHLORIDE
  8. ATEZOLIZUMAB. [Suspect]
     Active Substance: ATEZOLIZUMAB
     Indication: HEPATOCELLULAR CARCINOMA
     Route: 042
     Dates: start: 20191107
  9. PARACETAMOL [Concomitant]
     Active Substance: ACETAMINOPHEN
  10. ZOPICLONE [Concomitant]
     Active Substance: ZOPICLONE

REACTIONS (7)
  - Disease progression [Fatal]
  - Hemiplegia [Fatal]
  - Pyrexia [Recovered/Resolved]
  - Intracranial tumour haemorrhage [Fatal]
  - Brain compression [Fatal]
  - Thrombocytopenia [Unknown]
  - Aspartate aminotransferase increased [Not Recovered/Not Resolved]

NARRATIVE: CASE EVENT DATE: 20191122
